FAERS Safety Report 7030060-3 (Version None)
Quarter: 2010Q4

REPORT INFORMATION
  Report Type: 
  Country: None (occurrence: None)
  Receive Date: 20101006
  Receipt Date: 20100927
  Transmission Date: 20110411
  Serious: No
  Sender: FDA-Public Use
  Company Number: US-JNJFOC-20100908694

PATIENT
  Sex: Male

DRUGS (1)
  1. FENTANYL-100 [Suspect]
     Indication: PRODUCT USED FOR UNKNOWN INDICATION
     Route: 062

REACTIONS (5)
  - ASTHENIA [None]
  - INCORRECT DRUG ADMINISTRATION DURATION [None]
  - MALAISE [None]
  - NAUSEA [None]
  - WITHDRAWAL SYNDROME [None]
